FAERS Safety Report 6828740-5 (Version None)
Quarter: 2010Q3

REPORT INFORMATION
  Report Type: 
  Country: None (occurrence: None)
  Receive Date: 20100709
  Receipt Date: 20070217
  Transmission Date: 20110219
  Serious: No
  Sender: FDA-Public Use
  Company Number: US-PFIZER INC-2007014075

PATIENT
  Sex: Female
  Weight: 58.97 kg

DRUGS (6)
  1. CHANTIX [Suspect]
     Indication: SMOKING CESSATION THERAPY
     Dates: start: 20070208
  2. TRILEPTAL [Interacting]
     Indication: CONVULSION
  3. TOPAMAX [Interacting]
     Indication: CONVULSION
  4. KLONOPIN [Interacting]
     Indication: CONVULSION
  5. SUMATRIPTAN SUCCINATE (IMITREX) [Concomitant]
     Indication: MIGRAINE
  6. SUMATRIPTAN SUCCINATE (IMITREX) [Concomitant]
     Route: 050

REACTIONS (4)
  - DRUG INTERACTION [None]
  - MIGRAINE [None]
  - NAUSEA [None]
  - SOMNOLENCE [None]
